FAERS Safety Report 7421691-7 (Version None)
Quarter: 2011Q2

REPORT INFORMATION
  Report Type: 
  Country: None (occurrence: None)
  Receive Date: 20110418
  Receipt Date: 20110412
  Transmission Date: 20111010
  Serious: Yes (Hospitalization, Other)
  Sender: FDA-Public Use
  Company Number: JP-PFIZER INC-2011080596

PATIENT
  Sex: Female

DRUGS (1)
  1. GABAPEN [Suspect]
     Dosage: UNK
     Route: 048

REACTIONS (2)
  - HEPATITIS [None]
  - HEPATIC CIRRHOSIS [None]
